FAERS Safety Report 25241074 (Version 1)
Quarter: 2025Q2

REPORT INFORMATION
  Report Type: Spontaneous
  Country: US (occurrence: US)
  Receive Date: 20250425
  Receipt Date: 20250425
  Transmission Date: 20250716
  Serious: Yes (Hospitalization, Other)
  Sender: BRISTOL-MYERS SQUIBB COMPANY
  Company Number: US-BRISTOL-MYERS SQUIBB COMPANY-2025-057511

PATIENT
  Age: 83 Year
  Sex: Female
  Weight: 71.21 kg

DRUGS (1)
  1. POMALYST [Suspect]
     Active Substance: POMALIDOMIDE
     Indication: Plasma cell myeloma
     Route: 048
     Dates: start: 202501, end: 202503

REACTIONS (4)
  - Deep vein thrombosis [Recovering/Resolving]
  - Pulmonary embolism [Recovering/Resolving]
  - Therapy non-responder [Unknown]
  - Plasma cell myeloma [Unknown]

NARRATIVE: CASE EVENT DATE: 20250101
